FAERS Safety Report 13764605 (Version 1)
Quarter: 2017Q3

REPORT INFORMATION
  Report Type: Spontaneous
  Country: US (occurrence: US)
  Receive Date: 20170718
  Receipt Date: 20170718
  Transmission Date: 20171127
  Serious: No
  Sender: FDA-Public Use
  Company Number: US-BAUSCH-BL-2016-013751

PATIENT
  Sex: Male
  Weight: 72.64 kg

DRUGS (2)
  1. XIFAXAN [Suspect]
     Active Substance: RIFAXIMIN
     Indication: HEPATIC ENCEPHALOPATHY
     Route: 048
     Dates: start: 2015, end: 201605
  2. LACTULOSE SYRUP [Concomitant]
     Indication: HEPATIC ENCEPHALOPATHY
     Route: 048

REACTIONS (2)
  - Drug dose omission [Unknown]
  - No adverse event [Unknown]
